FAERS Safety Report 4552711-5 (Version None)
Quarter: 2005Q1

REPORT INFORMATION
  Report Type: 
  Country: None (occurrence: None)
  Receive Date: 20050112
  Receipt Date: 20050112
  Transmission Date: 20050727
  Serious: Yes (Life-Threatening)
  Sender: FDA-Public Use
  Company Number: None

PATIENT
  Age: 38 Year
  Sex: Female
  Weight: 110.2241 kg

DRUGS (2)
  1. BEXTRA [Suspect]
     Indication: ENDOMETRIOSIS
     Dosage: ONE PILL  2 TIMES A DAY ORAL
     Route: 048
     Dates: start: 20040901, end: 20041201
  2. SEASONALE [Suspect]
     Indication: ENDOMETRIOSIS
     Dosage: ONE PILL ONCE A DAY ORAL
     Route: 048
     Dates: start: 20040901, end: 20041101

REACTIONS (6)
  - CHEST PAIN [None]
  - DRUG INEFFECTIVE [None]
  - HEADACHE [None]
  - HEART RATE INCREASED [None]
  - MALIGNANT HYPERTENSION [None]
  - PAIN IN EXTREMITY [None]
